FAERS Safety Report 5025072-5 (Version None)
Quarter: 2006Q2

REPORT INFORMATION
  Report Type: 
  Country: None (occurrence: None)
  Receive Date: 20060608
  Receipt Date: 20060608
  Transmission Date: 20061013
  Serious: Yes (Other)
  Sender: FDA-Public Use
  Company Number: None

PATIENT
  Sex: Male
  Weight: 68.0396 kg

DRUGS (2)
  1. ZOCOR [Suspect]
     Indication: HYPERCHOLESTEROLAEMIA
     Dosage: 20 MG ONE AT HS PO
     Route: 048
     Dates: start: 20050829
  2. PRAVACHOL [Suspect]
     Indication: HYPERCHOLESTEROLAEMIA
     Dosage: 40 MG ONE AT HS PO
     Route: 048
     Dates: start: 20060118

REACTIONS (2)
  - INSOMNIA [None]
  - SHOULDER PAIN [None]
